FAERS Safety Report 20765334 (Version 2)
Quarter: 2022Q2

REPORT INFORMATION
  Report Type: Spontaneous
  Country: JP (occurrence: JP)
  Receive Date: 20220428
  Receipt Date: 20220517
  Transmission Date: 20220721
  Serious: Yes (Other)
  Sender: FDA-Public Use
  Company Number: JP-UCBJ-CD202203417UCBPHAPROD

PATIENT
  Age: 9 Decade
  Sex: Female

DRUGS (5)
  1. VIMPAT [Suspect]
     Active Substance: LACOSAMIDE
     Indication: Epilepsy
     Dosage: 50MG SOLELY BEFORE BEDTIME
     Route: 048
  2. VIMPAT [Suspect]
     Active Substance: LACOSAMIDE
     Dosage: 75MG DAILY (FOR THE MORNING DOSES)
     Route: 048
  3. VIMPAT [Suspect]
     Active Substance: LACOSAMIDE
     Dosage: 100MG DAILY
     Route: 048
  4. VIMPAT [Suspect]
     Active Substance: LACOSAMIDE
     Dosage: 75 MG AND 100 MG ALTERNATELY
     Route: 048
  5. VIMPAT [Suspect]
     Active Substance: LACOSAMIDE
     Dosage: 100MG
     Route: 048

REACTIONS (7)
  - Epilepsy [Unknown]
  - Mental impairment [Recovered/Resolved]
  - Dizziness [Recovered/Resolved]
  - Somnolence [Recovered/Resolved]
  - Prescribed underdose [Unknown]
  - Off label use [Unknown]
  - Treatment noncompliance [Unknown]
